FAERS Safety Report 7126191-X (Version None)
Quarter: 2010Q4

REPORT INFORMATION
  Report Type: 
  Country: None (occurrence: None)
  Receive Date: 20101129
  Receipt Date: 20101116
  Transmission Date: 20110411
  Serious: Yes (Other)
  Sender: FDA-Public Use
  Company Number: US-JNJFOC-20101107784

PATIENT
  Sex: Male
  Weight: 0.91 kg

DRUGS (4)
  1. TOPAMAX [Suspect]
     Indication: DRUG EXPOSURE DURING PREGNANCY
     Route: 065
  2. MACROBID [Suspect]
     Indication: DRUG EXPOSURE DURING PREGNANCY
     Route: 065
  3. STEROIDS NOS [Suspect]
     Indication: DRUG EXPOSURE DURING PREGNANCY
     Route: 065
  4. ANTIBIOTICS [Suspect]
     Indication: DRUG EXPOSURE DURING PREGNANCY
     Route: 065

REACTIONS (7)
  - CAESAREAN SECTION [None]
  - FOETAL GROWTH RESTRICTION [None]
  - INGUINAL HERNIA [None]
  - MATERNAL DRUGS AFFECTING FOETUS [None]
  - PLAGIOCEPHALY [None]
  - PREMATURE BABY [None]
  - TALIPES [None]
